FAERS Safety Report 25392931 (Version 1)
Quarter: 2025Q2

REPORT INFORMATION
  Report Type: Spontaneous
  Country: CN (occurrence: CN)
  Receive Date: 20250604
  Receipt Date: 20250604
  Transmission Date: 20250717
  Serious: Yes (Hospitalization)
  Sender: ABBVIE
  Company Number: CN-ABBOTT-2025A-1399640

PATIENT
  Age: 65 Year
  Sex: Male
  Weight: 71 kg

DRUGS (1)
  1. FENOFIBRATE [Suspect]
     Active Substance: FENOFIBRATE
     Indication: Lipids abnormal
     Route: 048
     Dates: start: 20250510, end: 20250517

REACTIONS (2)
  - Myalgia [Recovering/Resolving]
  - Muscular weakness [Recovering/Resolving]

NARRATIVE: CASE EVENT DATE: 20250517
